FAERS Safety Report 20165976 (Version 1)
Quarter: 2021Q4

REPORT INFORMATION
  Report Type: Spontaneous
  Country: US (occurrence: US)
  Receive Date: 20211209
  Receipt Date: 20211209
  Transmission Date: 20220303
  Serious: Yes (Other)
  Sender: FDA-Public Use
  Company Number: US-GLAXOSMITHKLINE-US2021GSK252514

PATIENT
  Sex: Female

DRUGS (4)
  1. RANITIDINE [Suspect]
     Active Substance: RANITIDINE
     Indication: Hernia
     Dosage: 150 MG, QD
     Route: 065
     Dates: start: 201405, end: 201507
  2. RANITIDINE [Suspect]
     Active Substance: RANITIDINE
     Indication: Hernia
     Dosage: 150 MG, QD
     Route: 065
     Dates: start: 201405, end: 201507
  3. RANITIDINE [Suspect]
     Active Substance: RANITIDINE
     Indication: Hernia
     Dosage: 150 MG, QD
     Route: 065
     Dates: start: 201405, end: 201507
  4. RANITIDINE [Suspect]
     Active Substance: RANITIDINE
     Indication: Hernia
     Dosage: 150 MG, QD
     Route: 065
     Dates: start: 201405, end: 201507

REACTIONS (1)
  - Bladder cancer [Unknown]
